FAERS Safety Report 7748363-3 (Version None)
Quarter: 2011Q3

REPORT INFORMATION
  Report Type: 
  Country: None (occurrence: None)
  Receive Date: 20110913
  Receipt Date: 20110909
  Transmission Date: 20111222
  Serious: Yes (Death, Other)
  Sender: FDA-Public Use
  Company Number: PHHY2011JP77342

PATIENT
  Age: 69 Year
  Sex: Female

DRUGS (1)
  1. ZOLEDRONIC [Suspect]
     Indication: METASTASES TO BONE
     Dosage: 4 MG, ONCE IN MONTH FOR 8 TIMES
     Route: 041
     Dates: start: 20080301, end: 20081101

REACTIONS (16)
  - NEOPLASM MALIGNANT [None]
  - NEOPLASM PROGRESSION [None]
  - ABSCESS [None]
  - HYPOPHAGIA [None]
  - EXPOSED BONE IN JAW [None]
  - WOUND COMPLICATION [None]
  - ORAL TORUS [None]
  - HAEMORRHAGE [None]
  - OSTEONECROSIS OF JAW [None]
  - PAIN IN JAW [None]
  - MUCOSAL ULCERATION [None]
  - STOMATITIS [None]
  - FISTULA [None]
  - C-REACTIVE PROTEIN INCREASED [None]
  - PRIMARY SEQUESTRUM [None]
  - WHITE BLOOD CELL COUNT INCREASED [None]
